FAERS Safety Report 5445321-9 (Version None)
Quarter: 2007Q3

REPORT INFORMATION
  Report Type: 
  Country: None (occurrence: None)
  Receive Date: 20070906
  Receipt Date: 20070430
  Transmission Date: 20080115
  Serious: No
  Sender: FDA-Public Use
  Company Number: A0649268A

PATIENT
  Age: 68 Year
  Sex: Male

DRUGS (13)
  1. REQUIP [Suspect]
     Indication: RESTLESS LEGS SYNDROME
     Dosage: 3MG PER DAY
     Route: 048
     Dates: start: 20061101
  2. CALCITRIOL [Concomitant]
  3. LIPITOR [Concomitant]
  4. FINASTERIDE [Concomitant]
  5. NEXIUM [Concomitant]
  6. METFORMIN HCL [Concomitant]
  7. GLIMEPIRIDE [Concomitant]
  8. DIGITEK [Concomitant]
  9. UNSPECIFIED MEDICATION [Concomitant]
  10. AMIODARONE [Concomitant]
  11. METOPROLOL SUCCINATE [Concomitant]
  12. WARFARIN SODIUM [Concomitant]
  13. CITALOPRAM HYDROBROMIDE [Concomitant]

REACTIONS (2)
  - DRUG INEFFECTIVE [None]
  - RESTLESS LEGS SYNDROME [None]
